FAERS Safety Report 23736406 (Version 1)
Quarter: 2024Q2

REPORT INFORMATION
  Report Type: Report from Study
  Country: CA (occurrence: CA)
  Receive Date: 20240412
  Receipt Date: 20240412
  Transmission Date: 20240716
  Serious: Yes (Hospitalization, Other)
  Sender: FDA-Public Use
  Company Number: CA-TAKEDA-2024TUS031351

PATIENT
  Sex: Female

DRUGS (3)
  1. VEDOLIZUMAB [Suspect]
     Active Substance: VEDOLIZUMAB
     Indication: Colitis ulcerative
     Dosage: 300 MILLIGRAM
     Route: 042
     Dates: start: 20181129
  2. Cortiment [Concomitant]
     Dosage: UNK
     Dates: start: 201807
  3. METHOTREXATE [Concomitant]
     Active Substance: METHOTREXATE
     Dosage: 3 MILLILITER
     Route: 058

REACTIONS (2)
  - Tonsillectomy [Recovering/Resolving]
  - Arthropathy [Unknown]
